FAERS Safety Report 10684428 (Version 1)
Quarter: 2014Q4

REPORT INFORMATION
  Report Type: Spontaneous
  Country: US (occurrence: None)
  Receive Date: 20141229
  Receipt Date: 20141229
  Transmission Date: 20150529
  Serious: Yes (Disabling)
  Sender: FDA-Public Use
  Company Number: None

PATIENT
  Age: 2 Month
  Sex: Male
  Weight: 4.08 kg

DRUGS (1)
  1. SINGULAIR [Suspect]
     Active Substance: MONTELUKAST SODIUM
     Indication: HYPERAESTHESIA
     Dosage: 1/2 PACKAGE TWICE DAILY TAKEN BY MOUTH
     Route: 048
     Dates: start: 20130401, end: 20130901

REACTIONS (2)
  - Hypophagia [None]
  - Failure to thrive [None]

NARRATIVE: CASE EVENT DATE: 20141226
